FAERS Safety Report 22610115 (Version 2)
Quarter: 2023Q2

REPORT INFORMATION
  Report Type: Spontaneous
  Country: HR (occurrence: HR)
  Receive Date: 20230616
  Receipt Date: 20230628
  Transmission Date: 20230721
  Serious: Yes (Other)
  Sender: FDA-Public Use
  Company Number: HR-Merck Healthcare KGaA-9408706

PATIENT
  Age: 82 Year
  Sex: Male

DRUGS (10)
  1. ERBITUX [Suspect]
     Active Substance: CETUXIMAB
     Indication: Colorectal cancer metastatic
     Dosage: UNK, MONTHLY (1/M)
     Route: 065
     Dates: start: 201910, end: 202009
  2. ERBITUX [Suspect]
     Active Substance: CETUXIMAB
     Dosage: UNK UNK, UNKNOWN
     Route: 065
     Dates: start: 202012
  3. LEUCOVORIN [Concomitant]
     Active Substance: LEUCOVORIN
     Indication: Colorectal cancer metastatic
     Dosage: UNK, UNKNOWN
     Route: 065
     Dates: start: 201806, end: 201903
  4. LEUCOVORIN [Concomitant]
     Active Substance: LEUCOVORIN
     Dosage: UNK, UNKNOWN
     Route: 065
     Dates: start: 201910, end: 202009
  5. LEUCOVORIN [Concomitant]
     Active Substance: LEUCOVORIN
     Dosage: UNK, UNKNOWN
     Route: 065
     Dates: start: 202012
  6. FLUOROURACIL [Concomitant]
     Active Substance: FLUOROURACIL
     Indication: Colorectal cancer metastatic
     Dosage: UNK, UNKNOWN
     Route: 065
     Dates: start: 201806, end: 201903
  7. FLUOROURACIL [Concomitant]
     Active Substance: FLUOROURACIL
     Dosage: UNK, UNKNOWN
     Route: 065
     Dates: start: 201910, end: 202009
  8. FLUOROURACIL [Concomitant]
     Active Substance: FLUOROURACIL
     Dosage: UNK, UNKNOWN
     Route: 065
     Dates: start: 202012
  9. IRINOTECAN [Concomitant]
     Active Substance: IRINOTECAN
     Indication: Colorectal cancer metastatic
     Dosage: UNK, UNKNOWN
     Route: 065
     Dates: start: 201910, end: 202009
  10. IRINOTECAN [Concomitant]
     Active Substance: IRINOTECAN
     Dosage: UNK, UNKNOWN
     Route: 065
     Dates: start: 202012

REACTIONS (3)
  - Vertigo [Unknown]
  - Vision blurred [Unknown]
  - General physical health deterioration [Unknown]

NARRATIVE: CASE EVENT DATE: 20210101
